FAERS Safety Report 4620311-4 (Version None)
Quarter: 2005Q1

REPORT INFORMATION
  Report Type: 
  Country: None (occurrence: None)
  Receive Date: 20050324
  Receipt Date: 20050316
  Transmission Date: 20050727
  Serious: Yes (Other)
  Sender: FDA-Public Use
  Company Number: 2004113576

PATIENT
  Age: 68 Year
  Sex: Female
  Weight: 73.4827 kg

DRUGS (8)
  1. LIPITOR [Suspect]
     Indication: ILL-DEFINED DISORDER
     Dosage: 10 MG (10 MG, 1 IN 1 D), ORAL
     Route: 048
     Dates: end: 20030916
  2. EZETIMIBE (EZETIMIBE) [Suspect]
     Indication: HYPERLIPIDAEMIA
     Dosage: 10 MG (1 IN 1 D), ORAL
     Route: 048
     Dates: start: 20031114
  3. ALL OTHER NON-THERAPEUTIC PRODUCTS (ALL OTHER NON-THERAPEUTIC PRODUCTS [Suspect]
     Indication: ILL-DEFINED DISORDER
  4. MEPROBAMATE [Concomitant]
  5. ESTROGENS CONJUGATED (ESETROGENS CONJUGATED) [Concomitant]
  6. VERAPAMIL HCL [Concomitant]
  7. CHLOROTHIAZIDE [Concomitant]
  8. PREDNISONE [Concomitant]

REACTIONS (32)
  - ANXIETY [None]
  - ARTHRALGIA [None]
  - ARTHRITIS [None]
  - ASTHENIA [None]
  - BACK PAIN [None]
  - CELLULITIS [None]
  - DEHYDRATION [None]
  - DIZZINESS [None]
  - DYSPNOEA [None]
  - ENTERITIS [None]
  - FEELING JITTERY [None]
  - HAEMORRHOIDAL HAEMORRHAGE [None]
  - HEADACHE [None]
  - HEPATITIS [None]
  - HYPERHIDROSIS [None]
  - HYPERLIPIDAEMIA [None]
  - HYPERTENSION [None]
  - LETHARGY [None]
  - MEDICATION ERROR [None]
  - MUSCLE STRAIN [None]
  - MYALGIA [None]
  - NASAL CONGESTION [None]
  - OSTEOPENIA [None]
  - PAIN IN EXTREMITY [None]
  - PYREXIA [None]
  - RESTRICTIVE PULMONARY DISEASE [None]
  - SLEEP DISORDER [None]
  - SOMNOLENCE [None]
  - STRESS [None]
  - TACHYCARDIA [None]
  - URINARY TRACT INFECTION [None]
  - WOUND [None]
